FAERS Safety Report 18939749 (Version 4)
Quarter: 2022Q1

REPORT INFORMATION
  Report Type: Other
  Country: DE (occurrence: None)
  Receive Date: 20210224
  Receipt Date: 20220221
  Transmission Date: 20220423
  Serious: Yes (Hospitalization, Other)
  Sender: FDA-Public Use
  Company Number: DE-ROCHE-2771234

PATIENT
  Sex: Male

DRUGS (14)
  1. TOCILIZUMAB [Suspect]
     Active Substance: TOCILIZUMAB
     Indication: Rheumatoid arthritis
     Route: 042
     Dates: start: 201911
  2. METHOTREXATE [Suspect]
     Active Substance: METHOTREXATE
     Indication: Rheumatoid arthritis
     Route: 065
  3. ORENCIA [Suspect]
     Active Substance: ABATACEPT
     Indication: Rheumatoid arthritis
     Route: 065
     Dates: start: 201712, end: 201903
  4. XELJANZ [Suspect]
     Active Substance: TOFACITINIB CITRATE
     Indication: Rheumatoid arthritis
     Route: 065
     Dates: start: 201903, end: 201910
  5. ATORVASTATIN [Concomitant]
     Active Substance: ATORVASTATIN
  6. MOLSIDOMINE [Concomitant]
     Active Substance: MOLSIDOMINE
  7. RAMIPRIL [Concomitant]
     Active Substance: RAMIPRIL
  8. FOLIC ACID [Concomitant]
     Active Substance: FOLIC ACID
  9. PANTOPRAZOLE [Concomitant]
     Active Substance: PANTOPRAZOLE
  10. CHOLECALCIFEROL [Concomitant]
     Active Substance: CHOLECALCIFEROL
  11. EVOLOCUMAB [Concomitant]
     Active Substance: EVOLOCUMAB
  12. MESALAMINE [Concomitant]
     Active Substance: MESALAMINE
  13. PREDNISOLONE [Concomitant]
     Active Substance: PREDNISOLONE
  14. ASPIRIN [Concomitant]
     Active Substance: ASPIRIN

REACTIONS (5)
  - Colitis ulcerative [Not Recovered/Not Resolved]
  - Cerebral infarction [Recovered/Resolved]
  - Cerebrovascular accident [Unknown]
  - Reversible ischaemic neurological deficit [Unknown]
  - Transient ischaemic attack [Unknown]

NARRATIVE: CASE EVENT DATE: 20201028
